FAERS Safety Report 6820300-5 (Version None)
Quarter: 2010Q3

REPORT INFORMATION
  Report Type: 
  Country: None (occurrence: None)
  Receive Date: 20100707
  Receipt Date: 20100628
  Transmission Date: 20110219
  Serious: Yes (Hospitalization)
  Sender: FDA-Public Use
  Company Number: FR-BAXTER-2010BH017140

PATIENT
  Age: 47 Year
  Sex: Female

DRUGS (4)
  1. ENDOXAN BAXTER [Suspect]
     Indication: BREAST CANCER
     Route: 042
     Dates: start: 20100525, end: 20100525
  2. EPIRUBICIN [Concomitant]
     Indication: BREAST CANCER
     Route: 042
     Dates: start: 20100525, end: 20100525
  3. METHYLPREDNISOLONE [Concomitant]
     Indication: PREMEDICATION
     Route: 042
     Dates: start: 20100525, end: 20100525
  4. ZOPHREN [Concomitant]
     Indication: PREMEDICATION
     Route: 042
     Dates: start: 20100525, end: 20100525

REACTIONS (6)
  - DIZZINESS [None]
  - HEADACHE [None]
  - MUSCLE TIGHTNESS [None]
  - NAUSEA [None]
  - PAIN IN EXTREMITY [None]
  - VISION BLURRED [None]
